FAERS Safety Report 12190110 (Version 2)
Quarter: 2016Q1

REPORT INFORMATION
  Report Type: Report from Study
  Country: US (occurrence: US)
  Receive Date: 20160318
  Receipt Date: 20160322
  Transmission Date: 20160526
  Serious: Yes (Hospitalization, Other)
  Sender: FDA-Public Use
  Company Number: US-ROCHE-1726663

PATIENT
  Age: 34 Year
  Sex: Female
  Weight: 50.2 kg

DRUGS (1)
  1. AVASTIN [Suspect]
     Active Substance: BEVACIZUMAB
     Indication: GLIOBLASTOMA
     Route: 065
     Dates: start: 20150318, end: 20160112

REACTIONS (6)
  - Generalised tonic-clonic seizure [Unknown]
  - Headache [Unknown]
  - Disease progression [Unknown]
  - Drug ineffective [Unknown]
  - Back pain [Unknown]
  - Device related infection [Unknown]

NARRATIVE: CASE EVENT DATE: 201511
